FAERS Safety Report 9687515 (Version 2)
Quarter: 2013Q4

REPORT INFORMATION
  Report Type: Spontaneous
  Country: BR (occurrence: BR)
  Receive Date: 20131114
  Receipt Date: 20131114
  Transmission Date: 20140711
  Serious: Yes (Other)
  Sender: FDA-Public Use
  Company Number: BR-JNJFOC-20130702474

PATIENT
  Age: 36 Year
  Sex: Female
  Weight: 83 kg

DRUGS (12)
  1. REMICADE [Suspect]
     Indication: PSORIATIC ARTHROPATHY
     Route: 042
     Dates: end: 20130821
  2. REMICADE [Suspect]
     Indication: PSORIATIC ARTHROPATHY
     Route: 042
     Dates: start: 201210
  3. REMICADE [Suspect]
     Indication: PSORIATIC ARTHROPATHY
     Route: 042
     Dates: end: 20130621
  4. REMICADE [Suspect]
     Indication: RHEUMATOID ARTHRITIS
     Route: 042
     Dates: end: 20130621
  5. REMICADE [Suspect]
     Indication: RHEUMATOID ARTHRITIS
     Route: 042
     Dates: end: 20130821
  6. REMICADE [Suspect]
     Indication: RHEUMATOID ARTHRITIS
     Route: 042
     Dates: start: 201210
  7. CATAFLAM D [Suspect]
     Indication: PRODUCT USED FOR UNKNOWN INDICATION
     Route: 065
  8. FLUOXETINE [Concomitant]
     Indication: DEPRESSION
     Route: 065
  9. BROMAZEPAM [Concomitant]
     Indication: SLEEP DISORDER THERAPY
     Route: 065
  10. DIPYRONE [Concomitant]
     Indication: ANALGESIC THERAPY
     Route: 065
  11. TRAMAL [Concomitant]
     Indication: ANALGESIC THERAPY
     Route: 065
  12. DOLAMIN FLEX [Concomitant]
     Indication: ANALGESIC THERAPY
     Route: 065

REACTIONS (9)
  - Drug-induced liver injury [Unknown]
  - Cystitis [Unknown]
  - Urinary tract infection [Unknown]
  - Eye discharge [Not Recovered/Not Resolved]
  - Chest discomfort [Not Recovered/Not Resolved]
  - Sinusitis [Not Recovered/Not Resolved]
  - Pain [Not Recovered/Not Resolved]
  - Drug ineffective [Recovering/Resolving]
  - Swelling [Unknown]
